FAERS Safety Report 12701934 (Version 2)
Quarter: 2017Q1

REPORT INFORMATION
  Report Type: Spontaneous
  Country: US (occurrence: US)
  Receive Date: 20160831
  Receipt Date: 20170322
  Transmission Date: 20170428
  Serious: No
  Sender: FDA-Public Use
  Company Number: US-JAZZ-2016-US-007620

PATIENT
  Sex: Female
  Weight: 52.15 kg

DRUGS (24)
  1. XYREM [Suspect]
     Active Substance: SODIUM OXYBATE
     Indication: CATAPLEXY
     Dosage: DOSE ADJUSTMENTS
     Route: 048
  2. MULTIVITAMINS [Concomitant]
     Active Substance: VITAMINS
  3. PROBIOTICA [Concomitant]
     Active Substance: PROBIOTICS NOS
  4. XYREM [Suspect]
     Active Substance: SODIUM OXYBATE
     Indication: NARCOLEPSY
     Dosage: 2.25 G, BID
     Route: 048
     Dates: start: 20160418, end: 2016
  5. XYREM [Suspect]
     Active Substance: SODIUM OXYBATE
     Dosage: 3 G, FIRST DOSE
     Route: 048
     Dates: start: 2016
  6. BIOTIN [Concomitant]
     Active Substance: BIOTIN
  7. DOXYCYCLINE HYCLATE. [Concomitant]
     Active Substance: DOXYCYCLINE HYCLATE
     Indication: ACNE
  8. FISH OIL [Concomitant]
     Active Substance: FISH OIL
  9. SUDAFED [Concomitant]
     Active Substance: PSEUDOEPHEDRINE HYDROCHLORIDE
  10. VITAMIN C [Concomitant]
     Active Substance: ASCORBIC ACID
  11. CLARITIN [Concomitant]
     Active Substance: LORATADINE
     Indication: HYPERSENSITIVITY
  12. MODAFINIL. [Concomitant]
     Active Substance: MODAFINIL
     Indication: NARCOLEPSY
  13. VITAMIN B COMPLEX [Concomitant]
     Active Substance: CYANOCOBALAMIN\DEXPANTHENOL\NIACINAMIDE\PYRIDOXINE HYDROCHLORIDE\RIBOFLAVIN 5^-PHOSPHATE SODIUM\THIAMINE HYDROCHLORIDE\VITAMIN B COMPLEX
  14. ZINC GLUCONATE [Concomitant]
     Active Substance: ZINC GLUCONATE
  15. XYREM [Suspect]
     Active Substance: SODIUM OXYBATE
     Dosage: 2.5 G, SECOND DOSE
     Route: 048
     Dates: start: 2016
  16. TURMERIC [Concomitant]
     Active Substance: TURMERIC
  17. PRENATAL [Concomitant]
     Active Substance: VITAMINS
  18. VITAMINS [Concomitant]
     Active Substance: VITAMINS
  19. CALCIUM CARBASPIRIN [Concomitant]
  20. COCONUT OIL [Concomitant]
     Active Substance: COCONUT OIL
  21. IRON [Concomitant]
     Active Substance: IRON
  22. GLUCOSAMINE SULFATE [Concomitant]
     Active Substance: GLUCOSAMINE SULFATE
  23. JUICE PLUS [Concomitant]
     Active Substance: DIETARY SUPPLEMENT
  24. MAGNESIUM [Concomitant]
     Active Substance: MAGNESIUM

REACTIONS (5)
  - Lethargy [Not Recovered/Not Resolved]
  - Dehydration [Unknown]
  - Condition aggravated [Not Recovered/Not Resolved]
  - Fatigue [Not Recovered/Not Resolved]
  - Hangover [Unknown]
